FAERS Safety Report 10707471 (Version 1)
Quarter: 2015Q1

REPORT INFORMATION
  Report Type: Spontaneous
  Country: FR (occurrence: FR)
  Receive Date: 20150113
  Receipt Date: 20150113
  Transmission Date: 20150721
  Serious: Yes (Hospitalization)
  Sender: FDA-Public Use
  Company Number: FR-009507513-1501FRA001957

PATIENT
  Age: 0 Day
  Sex: Male
  Weight: 3 kg

DRUGS (9)
  1. NORSET [Suspect]
     Active Substance: MIRTAZAPINE
     Dosage: 15 MG, QD
     Route: 064
     Dates: start: 20141103, end: 20141221
  2. TARDYFERON [Concomitant]
     Active Substance: FERROUS SULFATE\FOLIC ACID
     Dosage: UNK
  3. EFFEXOR LP [Suspect]
     Active Substance: VENLAFAXINE HYDROCHLORIDE
     Dosage: 75 MG, 5 TIMES IN 24 HOURS
     Route: 064
     Dates: start: 2014, end: 20141103
  4. EFFEXOR LP [Suspect]
     Active Substance: VENLAFAXINE HYDROCHLORIDE
     Dosage: 75 MG, 2 TIMES IN 24 HOURS
     Route: 064
     Dates: start: 20141214, end: 20141221
  5. ATARAX [Suspect]
     Active Substance: HYDROXYZINE\HYDROXYZINE HYDROCHLORIDE
     Dosage: TOTAL DAILY DOSE: 100MG, 2X50MG
     Route: 064
     Dates: start: 20141220, end: 20141220
  6. EFFEXOR LP [Suspect]
     Active Substance: VENLAFAXINE HYDROCHLORIDE
     Dosage: 75 MG, 3 TIMES IN 24 HOURS
     Route: 064
     Dates: start: 20141201, end: 20141214
  7. EFFEXOR LP [Suspect]
     Active Substance: VENLAFAXINE HYDROCHLORIDE
     Dosage: 75 MG, 4 TIMES IN 24 HOURS
     Route: 064
     Dates: start: 20141103, end: 20141201
  8. UVEDOSE [Concomitant]
     Active Substance: CHOLECALCIFEROL
     Dosage: UNK
  9. NORSET [Suspect]
     Active Substance: MIRTAZAPINE
     Dosage: TOTAL DAILY DOSE: 45 MG
     Route: 064
     Dates: end: 20141103

REACTIONS (4)
  - Poor sucking reflex [Recovering/Resolving]
  - Respiratory distress [Recovered/Resolved]
  - Hypotonia [Recovered/Resolved]
  - Agitation [Recovered/Resolved]

NARRATIVE: CASE EVENT DATE: 20141221
